FAERS Safety Report 5614198-0 (Version None)
Quarter: 2008Q1

REPORT INFORMATION
  Report Type: 
  Country: None (occurrence: None)
  Receive Date: 20080205
  Receipt Date: 20080124
  Transmission Date: 20080703
  Serious: Yes (Other)
  Sender: FDA-Public Use
  Company Number: US-PFIZER INC-2008007824

PATIENT
  Sex: Female

DRUGS (1)
  1. XALATAN [Suspect]

REACTIONS (4)
  - CARDIAC DISORDER [None]
  - DYSPEPSIA [None]
  - HEART RATE INCREASED [None]
  - RETINAL VASCULAR THROMBOSIS [None]
